FAERS Safety Report 11595822 (Version 2)
Quarter: 2015Q4

REPORT INFORMATION
  Report Type: Spontaneous
  Country: US (occurrence: US)
  Receive Date: 20151006
  Receipt Date: 20151109
  Transmission Date: 20160304
  Serious: Yes (Death, Hospitalization)
  Sender: FDA-Public Use
  Company Number: US-AUROBINDO-AUR-APL-2015-08750

PATIENT
  Age: 32 Year
  Sex: Female

DRUGS (1)
  1. QUETIAPINE [Suspect]
     Active Substance: QUETIAPINE
     Indication: PRODUCT USED FOR UNKNOWN INDICATION
     Route: 065

REACTIONS (13)
  - Rhabdomyolysis [Unknown]
  - Haemodynamic instability [Unknown]
  - Brain oedema [Unknown]
  - Hypotension [Unknown]
  - Electrocardiogram QRS complex prolonged [Unknown]
  - Acute kidney injury [Unknown]
  - Drug level above therapeutic [Unknown]
  - Toxicity to various agents [Fatal]
  - Overdose [Fatal]
  - Pulse absent [Unknown]
  - Metabolic acidosis [Unknown]
  - Unresponsive to stimuli [Unknown]
  - Tachycardia [Unknown]
